FAERS Safety Report 11437858 (Version 1)
Quarter: 2015Q3

REPORT INFORMATION
  Report Type: Report from Study
  Country: DE (occurrence: DE)
  Receive Date: 20150831
  Receipt Date: 20150831
  Transmission Date: 20151125
  Serious: Yes (Life-Threatening, Hospitalization, Other)
  Sender: FDA-Public Use
  Company Number: DE-ABBVIE-15K-062-1453865-00

PATIENT
  Age: 23 Year
  Sex: Female

DRUGS (12)
  1. QUETIAPIN [Concomitant]
     Active Substance: QUETIAPINE
     Indication: PRODUCT USED FOR UNKNOWN INDICATION
  2. IRON SULFATE [Concomitant]
     Active Substance: FERROUS SULFATE ANHYDROUS
     Indication: HYPOCHROMIC ANAEMIA
  3. IRON SULFATE [Concomitant]
     Active Substance: FERROUS SULFATE ANHYDROUS
     Indication: IRON DEFICIENCY ANAEMIA
  4. LEFLUNOMIDE. [Suspect]
     Active Substance: LEFLUNOMIDE
     Indication: PRODUCT USED FOR UNKNOWN INDICATION
     Route: 065
     Dates: start: 201303, end: 20150115
  5. CITALOPRAM [Concomitant]
     Active Substance: CITALOPRAM HYDROBROMIDE
     Indication: PRODUCT USED FOR UNKNOWN INDICATION
  6. FENTANYL. [Concomitant]
     Active Substance: FENTANYL
     Indication: PRODUCT USED FOR UNKNOWN INDICATION
     Route: 062
  7. MOVICOL [Concomitant]
     Active Substance: POLYETHYLENE GLYCOL 3350\POTASSIUM CHLORIDE\SODIUM BICARBONATE\SODIUM CHLORIDE
     Indication: PRODUCT USED FOR UNKNOWN INDICATION
  8. ESOMEPRAZOLE [Concomitant]
     Active Substance: ESOMEPRAZOLE
     Indication: PRODUCT USED FOR UNKNOWN INDICATION
  9. BISOPROLOL [Concomitant]
     Active Substance: BISOPROLOL
     Indication: PRODUCT USED FOR UNKNOWN INDICATION
  10. ENOXAPARIN [Concomitant]
     Active Substance: ENOXAPARIN
     Indication: PRODUCT USED FOR UNKNOWN INDICATION
     Route: 058
  11. JONOSTERIL [Concomitant]
     Active Substance: CALCIUM ACETATE\MAGNESIUM ACETATE\POTASSIUM ACETATE\SODIUM ACETATE\SODIUM CHLORIDE
     Indication: PRODUCT USED FOR UNKNOWN INDICATION
     Route: 042
  12. HUMIRA [Suspect]
     Active Substance: ADALIMUMAB
     Indication: JUVENILE IDIOPATHIC ARTHRITIS
     Route: 058
     Dates: start: 201403, end: 20150104

REACTIONS (24)
  - Cerebrospinal fistula [Unknown]
  - CNS ventriculitis [Unknown]
  - Ischaemic stroke [Unknown]
  - Hypochromic anaemia [Unknown]
  - Neutropenia [Unknown]
  - Infection [Unknown]
  - Pneumocephalus [Unknown]
  - Cerebrospinal fluid leakage [Unknown]
  - Haematemesis [Recovered/Resolved]
  - Impaired healing [Unknown]
  - Pleocytosis [Unknown]
  - Arteriovenous malformation [Not Recovered/Not Resolved]
  - Disturbance in attention [Unknown]
  - Urinary tract infection enterococcal [Unknown]
  - Amenorrhoea [Unknown]
  - Abdominal wall disorder [Recovered/Resolved]
  - Cerebellar haemorrhage [Not Recovered/Not Resolved]
  - Locked-in syndrome [Not Recovered/Not Resolved]
  - Respiratory failure [Unknown]
  - Iron deficiency anaemia [Unknown]
  - Cyanosis [Unknown]
  - Staphylococcal infection [Unknown]
  - Meningitis bacterial [Unknown]
  - Blood prolactin increased [Unknown]

NARRATIVE: CASE EVENT DATE: 2015
